FAERS Safety Report 19674286 (Version 2)
Quarter: 2021Q3

REPORT INFORMATION
  Report Type: Spontaneous
  Country: US (occurrence: US)
  Receive Date: 20210809
  Receipt Date: 20210821
  Transmission Date: 20211014
  Serious: Yes (Life-Threatening, Other)
  Sender: FDA-Public Use
  Company Number: US-AUROBINDO-AUR-APL-2021-032895

PATIENT
  Sex: Male

DRUGS (1)
  1. VALSARTAN. [Suspect]
     Active Substance: VALSARTAN
     Indication: HYPERTENSION
     Dosage: UNK
     Route: 065
     Dates: start: 2012, end: 201808

REACTIONS (9)
  - Prostate cancer [Unknown]
  - Anxiety [Unknown]
  - Squamous cell carcinoma [Unknown]
  - Injury [Unknown]
  - Emotional distress [Unknown]
  - Thyroid cancer [Unknown]
  - Basal cell carcinoma [Unknown]
  - Testis cancer [Unknown]
  - Economic problem [Unknown]

NARRATIVE: CASE EVENT DATE: 201205
